FAERS Safety Report 7032223-X (Version None)
Quarter: 2010Q4

REPORT INFORMATION
  Report Type: 
  Country: None (occurrence: None)
  Receive Date: 20101007
  Receipt Date: 20100308
  Transmission Date: 20110411
  Serious: Yes (Hospitalization, Other)
  Sender: FDA-Public Use
  Company Number: IT-BRISTOL-MYERS SQUIBB COMPANY-15018294

PATIENT
  Age: 58 Year
  Sex: Male
  Weight: 58 kg

DRUGS (6)
  1. CETUXIMAB [Suspect]
     Indication: COLORECTAL CANCER
     Route: 042
     Dates: start: 20080423, end: 20080506
  2. OXALIPLATIN [Suspect]
     Indication: COLORECTAL CANCER
     Route: 042
     Dates: start: 20080423, end: 20080506
  3. FOLINIC ACID [Suspect]
     Indication: COLORECTAL CANCER
     Route: 048
     Dates: start: 20080423, end: 20080509
  4. UFT [Suspect]
     Indication: COLORECTAL CANCER
     Dosage: FORM = CAPSULES 5 DF =5 CAPS
     Route: 048
     Dates: start: 20080423, end: 20080509
  5. TPN [Concomitant]
     Indication: SUPPORTIVE CARE
  6. ANTIBIOTICS [Concomitant]
     Indication: SUPPORTIVE CARE

REACTIONS (25)
  - ABDOMINAL PAIN [None]
  - ABDOMINAL PAIN UPPER [None]
  - BODY TEMPERATURE INCREASED [None]
  - CHILLS [None]
  - COLONIC STENOSIS [None]
  - DEHYDRATION [None]
  - DIARRHOEA [None]
  - GASTROINTESTINAL NECROSIS [None]
  - HAEMORRHAGIC ANAEMIA [None]
  - HYPOTENSION [None]
  - INTESTINAL ISCHAEMIA [None]
  - MENTAL DISORDER [None]
  - MUCOSAL INFLAMMATION [None]
  - OLIGURIA [None]
  - ONCOLOGIC COMPLICATION [None]
  - PERITONITIS [None]
  - PLATELET COUNT DECREASED [None]
  - PNEUMATOSIS INTESTINALIS [None]
  - PORTAL VENOUS GAS [None]
  - PURULENCE [None]
  - SMALL INTESTINAL PERFORATION [None]
  - TUMOUR HAEMORRHAGE [None]
  - VOLVULUS OF SMALL BOWEL [None]
  - WHITE BLOOD CELL COUNT DECREASED [None]
  - WOUND SECRETION [None]
